FAERS Safety Report 9160191 (Version 2)
Quarter: 2013Q2

REPORT INFORMATION
  Report Type: Spontaneous
  Country: GB (occurrence: GB)
  Receive Date: 20130313
  Receipt Date: 20130626
  Transmission Date: 20140414
  Serious: Yes (Other)
  Sender: FDA-Public Use
  Company Number: GB-PFIZER INC-2013083186

PATIENT
  Sex: Female

DRUGS (1)
  1. AMLODIPINE BESILATE [Suspect]
     Indication: HYPERTENSION
     Dosage: 5 MG, 1X/DAY
     Dates: start: 2010

REACTIONS (3)
  - Headache [Unknown]
  - Flushing [Unknown]
  - Feeling hot [Unknown]
